FAERS Safety Report 4506450-7 (Version None)
Quarter: 2004Q4

REPORT INFORMATION
  Report Type: 
  Country: None (occurrence: None)
  Receive Date: 20041122
  Receipt Date: 20041109
  Transmission Date: 20050328
  Serious: Yes (Death, Hospitalization, Other)
  Sender: FDA-Public Use
  Company Number: JP-JNJFOC-20040402644

PATIENT
  Sex: Female
  Weight: 38 kg

DRUGS (20)
  1. REMICADE [Suspect]
     Route: 041
     Dates: start: 20040315
  2. REMICADE [Suspect]
     Indication: RHEUMATOID ARTHRITIS
     Route: 041
     Dates: start: 20040315
  3. PREDNISOLONE [Suspect]
     Route: 049
     Dates: start: 20040114
  4. PREDNISOLONE [Suspect]
     Route: 049
     Dates: start: 20040114
  5. PREDNISOLONE [Suspect]
     Route: 049
     Dates: start: 20040114
  6. PREDNISOLONE [Suspect]
     Route: 049
     Dates: start: 20040114
  7. PREDNISOLONE [Suspect]
     Indication: RHEUMATOID ARTHRITIS
     Route: 049
     Dates: start: 20040114
  8. METHOTREXATE [Concomitant]
     Route: 049
  9. METHOTREXATE [Concomitant]
     Route: 049
  10. RHEUMATREX [Concomitant]
     Route: 049
  11. RHEUMATREX [Concomitant]
     Route: 049
  12. RHEUMATREX [Concomitant]
     Indication: RHEUMATOID ARTHRITIS
     Route: 049
  13. LORCAM [Concomitant]
     Indication: RHEUMATOID ARTHRITIS
     Route: 065
     Dates: start: 20040212
  14. FOLIAMIN [Concomitant]
     Route: 049
     Dates: start: 20040205
  15. PLATIVIT [Concomitant]
     Route: 065
     Dates: start: 20040114
  16. SELBEX [Concomitant]
     Route: 065
     Dates: start: 20040114
  17. FERROMIA [Concomitant]
     Route: 065
     Dates: start: 20040114
  18. PRONON [Concomitant]
     Route: 065
     Dates: start: 20040114
  19. LASIX [Concomitant]
     Route: 065
     Dates: start: 20040114
  20. SOLERUMON SR [Concomitant]
     Indication: RHEUMATOID ARTHRITIS
     Route: 049

REACTIONS (10)
  - CELLULITIS [None]
  - DEAFNESS NEUROSENSORY [None]
  - DYSPHAGIA [None]
  - PRODUCTIVE COUGH [None]
  - PYREXIA [None]
  - SHOCK [None]
  - SPEECH DISORDER [None]
  - STAPHYLOCOCCAL INFECTION [None]
  - THROMBOCYTOPENIA [None]
  - WHITE BLOOD CELL COUNT DECREASED [None]
